FAERS Safety Report 5959070-1 (Version None)
Quarter: 2008Q4

REPORT INFORMATION
  Report Type: 
  Country: None (occurrence: None)
  Receive Date: 20081120
  Receipt Date: 20071023
  Transmission Date: 20090506
  Serious: Yes (Other)
  Sender: FDA-Public Use
  Company Number: A0686933A

PATIENT
  Age: 48 Year
  Sex: Female
  Weight: 80 kg

DRUGS (2)
  1. WELLBUTRIN SR [Suspect]
     Indication: DEPRESSION
     Dosage: 150MG TWICE PER DAY
     Route: 048
     Dates: start: 20070924, end: 20071003
  2. NO CONCURRENT MEDICATION [Concomitant]

REACTIONS (3)
  - GENERALISED ERYTHEMA [None]
  - PRURITUS [None]
  - RASH [None]
